FAERS Safety Report 6108916-5 (Version None)
Quarter: 2009Q1

REPORT INFORMATION
  Report Type: 
  Country: None (occurrence: None)
  Receive Date: 20090306
  Receipt Date: 20090302
  Transmission Date: 20090719
  Serious: Yes (Other)
  Sender: FDA-Public Use
  Company Number: 186436USA

PATIENT
  Sex: Female

DRUGS (3)
  1. LEUCOVORIN CALCIUM [Suspect]
     Indication: BLOOD FOLATE ABNORMAL
     Dosage: 300 MG (25 MG, 12 IN 1 D), ORAL
     Route: 048
     Dates: start: 19980301
  2. LEUCOVORIN CALCIUM [Suspect]
     Indication: MALABSORPTION
     Dosage: 300 MG (25 MG, 12 IN 1 D), ORAL
     Route: 048
     Dates: start: 19980301
  3. ASCORBIC ACID [Concomitant]

REACTIONS (1)
  - OTOTOXICITY [None]
